FAERS Safety Report 7273788-2 (Version None)
Quarter: 2011Q1

REPORT INFORMATION
  Report Type: 
  Country: None (occurrence: None)
  Receive Date: 20110203
  Receipt Date: 20110125
  Transmission Date: 20110831
  Serious: Yes (Other)
  Sender: FDA-Public Use
  Company Number: GR-BAYER-2010-000101

PATIENT
  Age: 5 Year
  Sex: Male

DRUGS (3)
  1. HELIXATE [Suspect]
     Indication: HAEMOPHILIA
     Dosage: DAILY DOSE 90 ?G/KG
  2. HELIXATE [Suspect]
     Dosage: UNK, TIW
     Dates: end: 20080501
  3. HELIXATE [Suspect]
     Dosage: UNK
     Dates: end: 20071201

REACTIONS (2)
  - HAEMARTHROSIS [None]
  - FACTOR VIII INHIBITION [None]
